FAERS Safety Report 16159017 (Version 7)
Quarter: 2021Q1

REPORT INFORMATION
  Report Type: Spontaneous
  Country: GB (occurrence: GB)
  Receive Date: 20190404
  Receipt Date: 20210323
  Transmission Date: 20210419
  Serious: Yes (Other)
  Sender: FDA-Public Use
  Company Number: GB-OTSUKA-2019_009764

PATIENT
  Age: 25 Year
  Sex: Female
  Weight: 47 kg

DRUGS (9)
  1. BUSILVEX [Suspect]
     Active Substance: BUSULFAN
     Indication: BONE MARROW CONDITIONING REGIMEN
     Dosage: 147 MG,1 IN 1 D
     Route: 065
     Dates: start: 20190205, end: 20190208
  2. FLUCLOXACILLIN [Concomitant]
     Active Substance: FLUCLOXACILLIN
     Indication: BARTHOLIN^S CYST
     Dosage: UNK
     Route: 048
     Dates: start: 20171217
  3. G?CSF [Concomitant]
     Active Substance: GRANULOCYTE COLONY-STIMULATING FACTOR NOS
     Indication: PRODUCT USED FOR UNKNOWN INDICATION
     Dosage: 526 MCG 1 IN 1 DAY
     Route: 065
     Dates: start: 20180302, end: 20180307
  4. ALENDRONIC ACID [Concomitant]
     Active Substance: ALENDRONIC ACID
     Indication: OSTEOPOROSIS
     Dosage: UNK
     Route: 048
     Dates: start: 20170415
  5. PARACETAMOL [Concomitant]
     Active Substance: ACETAMINOPHEN
     Indication: ARTHRALGIA
     Dosage: UNK
     Route: 048
     Dates: start: 20170818
  6. PLERIXAFOR [Suspect]
     Active Substance: PLERIXAFOR
     Indication: HAEMATOPOIETIC STEM CELL MOBILISATION
     Dosage: 10.8 MG DAILY
     Route: 065
     Dates: start: 20180305, end: 20180306
  7. CALCIUM CARBONATE. [Concomitant]
     Active Substance: CALCIUM CARBONATE
     Indication: OSTEOPOROSIS
     Dosage: UNK
     Route: 048
     Dates: start: 20170415
  8. VITAMIN D3 [Concomitant]
     Active Substance: CHOLECALCIFEROL
     Indication: VITAMIN D DEFICIENCY
     Dosage: UNK
     Route: 048
     Dates: start: 20170615
  9. COLECALCIFEROL [Concomitant]
     Active Substance: CHOLECALCIFEROL
     Indication: PRODUCT USED FOR UNKNOWN INDICATION
     Dosage: UNK
     Route: 065
     Dates: start: 20170615

REACTIONS (17)
  - Cardiac failure congestive [Not Recovered/Not Resolved]
  - Palpitations [Unknown]
  - Latent tuberculosis [Unknown]
  - Oedema [Unknown]
  - Fungal infection [Unknown]
  - Cardiac failure congestive [Recovered/Resolved]
  - Sarcoidosis [Unknown]
  - Dyspnoea [Unknown]
  - Ejection fraction [Unknown]
  - Systolic dysfunction [Unknown]
  - Oxygen consumption increased [Unknown]
  - Febrile neutropenia [Unknown]
  - Left ventricular dilatation [Unknown]
  - Stomatitis [Unknown]
  - Pulmonary oedema [Unknown]
  - Pleural effusion [Unknown]
  - Neutrophil count abnormal [Unknown]

NARRATIVE: CASE EVENT DATE: 201902
